FAERS Safety Report 7868278-X (Version None)
Quarter: 2011Q4

REPORT INFORMATION
  Report Type: 
  Country: None (occurrence: None)
  Receive Date: 20111028
  Receipt Date: 20101227
  Transmission Date: 20120403
  Serious: No
  Sender: FDA-Public Use
  Company Number: US-AMGEN-KDL369852

PATIENT
  Sex: Female

DRUGS (2)
  1. ENBREL [Suspect]
     Indication: PSORIASIS
     Dosage: 25 MG, 2 TIMES/WK
     Route: 058
     Dates: start: 20090727, end: 20090101
  2. ENBREL [Suspect]
     Dates: start: 20090727

REACTIONS (4)
  - INJECTION SITE ERYTHEMA [None]
  - HEADACHE [None]
  - INJECTION SITE REACTION [None]
  - INJECTION SITE PRURITUS [None]
